FAERS Safety Report 4549623-X (Version None)
Quarter: 2005Q1

REPORT INFORMATION
  Report Type: 
  Country: None (occurrence: None)
  Receive Date: 20050106
  Receipt Date: 20041229
  Transmission Date: 20050727
  Serious: Yes (Other)
  Sender: FDA-Public Use
  Company Number: 2004121788

PATIENT
  Age: 73 Year
  Sex: Male
  Weight: 81.6475 kg

DRUGS (5)
  1. LIPITOR [Suspect]
     Indication: ARTERIOSCLEROSIS
     Dosage: 10 MG (10 MG, 1 IN 1 D), ORAL
     Route: 048
  2. TIMOPTIC [Suspect]
     Indication: GLAUCOMA
     Dosage: OPHTHALMIC
  3. HYTRIN [Concomitant]
  4. HYDROCHLOROTHIAZIDE [Concomitant]
  5. FUROSEMIDE 9FUROSEMIDE) [Concomitant]

REACTIONS (4)
  - DRUG INTERACTION [None]
  - DRY EYE [None]
  - EYE IRRITATION [None]
  - VISUAL ACUITY REDUCED [None]
